FAERS Safety Report 5076268-8 (Version None)
Quarter: 2006Q3

REPORT INFORMATION
  Report Type: 
  Country: None (occurrence: None)
  Receive Date: 20060804
  Receipt Date: 20060802
  Transmission Date: 20061208
  Serious: Yes (Hospitalization)
  Sender: FDA-Public Use
  Company Number: 220334

PATIENT
  Age: 60 Year
  Sex: Male

DRUGS (7)
  1. MABTHERA (RITUXIMAB) CONC FOR SOLUTION FOR INFUSION [Suspect]
     Indication: DRUG USE FOR UNKNOWN INDICATION
     Dosage: INTRAVENOUS
     Route: 042
     Dates: start: 20050323, end: 20050326
  2. IDARUBICIN HCL [Suspect]
     Indication: CHRONIC LYMPHOCYTIC LEUKAEMIA
     Dosage: INTRAVENOUS
     Route: 042
     Dates: start: 20050323, end: 20050326
  3. VALGANCICLOVIR HCL [Suspect]
     Indication: VIRAL INFECTION
     Dosage: INTRAVENOUS
     Route: 042
     Dates: start: 20050326, end: 20050331
  4. DEXAMETHASONE [Concomitant]
  5. VFEND [Concomitant]
  6. VINCRISTINE [Concomitant]
  7. NEORECORMON (EPOETIN BETA) [Concomitant]

REACTIONS (10)
  - APLASIA [None]
  - BLOOD CULTURE POSITIVE [None]
  - CYTOMEGALOVIRUS ANTIGEN POSITIVE [None]
  - DIARRHOEA [None]
  - FUNGUS SEROLOGY TEST POSITIVE [None]
  - HAEMOLYSIS [None]
  - INFLAMMATION [None]
  - PYREXIA [None]
  - RENAL FAILURE [None]
  - STAPHYLOCOCCAL INFECTION [None]
